FAERS Safety Report 8318740-0 (Version None)
Quarter: 2012Q2

REPORT INFORMATION
  Report Type: 
  Country: None (occurrence: None)
  Receive Date: 20120427
  Receipt Date: 20120420
  Transmission Date: 20120825
  Serious: Yes (Hospitalization)
  Sender: FDA-Public Use
  Company Number: IT-PFIZER INC-2012100065

PATIENT
  Age: 60 Year
  Sex: Male

DRUGS (3)
  1. SILDENAFIL CITRATE [Suspect]
     Indication: CAROTID ARTERY STENOSIS
  2. SILDENAFIL CITRATE [Suspect]
     Indication: ERECTILE DYSFUNCTION
     Dosage: 50 MG, QD
     Route: 048
  3. METFORMIN [Concomitant]

REACTIONS (2)
  - OPTIC ISCHAEMIC NEUROPATHY [None]
  - MACULAR DEGENERATION [None]
